FAERS Safety Report 20344412 (Version 1)
Quarter: 2022Q1

REPORT INFORMATION
  Report Type: Spontaneous
  Country: ES (occurrence: ES)
  Receive Date: 20220118
  Receipt Date: 20220118
  Transmission Date: 20220423
  Serious: Yes (Other)
  Sender: FDA-Public Use
  Company Number: None

PATIENT
  Age: 35 Year
  Sex: Female
  Weight: 63 kg

DRUGS (1)
  1. ENOXAPARIN SODIUM [Suspect]
     Active Substance: ENOXAPARIN SODIUM
     Indication: COVID-19
     Dosage: PRELOADED INJECTION INJECTED IN THE GUT
     Route: 058
     Dates: start: 20211227

REACTIONS (2)
  - Vision blurred [Recovered/Resolved with Sequelae]
  - Migraine with aura [Recovered/Resolved with Sequelae]

NARRATIVE: CASE EVENT DATE: 20211227
